FAERS Safety Report 9017623 (Version 2)
Quarter: 2013Q1

REPORT INFORMATION
  Report Type: Spontaneous
  Country: DE (occurrence: DE)
  Receive Date: 20130117
  Receipt Date: 20130204
  Transmission Date: 20140127
  Serious: Yes (Life-Threatening, Hospitalization)
  Sender: FDA-Public Use
  Company Number: DE-B.I. PHARMACEUTICALS,INC./RIDGEFIELD-2013-DE-00082DE

PATIENT
  Age: 44 Year
  Sex: Male
  Weight: 80 kg

DRUGS (4)
  1. PRADAXA [Suspect]
     Indication: ANTICOAGULANT THERAPY
     Dosage: 300 MG
     Route: 048
     Dates: start: 20130103, end: 20130106
  2. PRADAXA [Suspect]
     Indication: TACHYARRHYTHMIA
  3. PRADAXA [Suspect]
     Indication: ATRIAL FIBRILLATION
  4. BELOC ZOK MITE [Concomitant]
     Indication: TACHYARRHYTHMIA
     Route: 048
     Dates: start: 20130103

REACTIONS (2)
  - Pulmonary embolism [Unknown]
  - Pulmonary oedema [Recovered/Resolved]
